FAERS Safety Report 4773858-4 (Version None)
Quarter: 2005Q3

REPORT INFORMATION
  Report Type: 
  Country: None (occurrence: None)
  Receive Date: 20050920
  Receipt Date: 20050913
  Transmission Date: 20060218
  Serious: Yes (Hospitalization)
  Sender: FDA-Public Use
  Company Number: PHNU2005DE03176

PATIENT
  Sex: Female

DRUGS (3)
  1. ENALAPRIL [Concomitant]
  2. DOXAZOSIN [Concomitant]
  3. EMSELEX EXTENDED RELEASE [Suspect]
     Indication: HYPERTONIC BLADDER
     Dosage: 15 MG DAILY
     Route: 048
     Dates: end: 20050601

REACTIONS (2)
  - LIVER DISORDER [None]
  - TRANSAMINASES INCREASED [None]
